FAERS Safety Report 4628052-4 (Version None)
Quarter: 2005Q2

REPORT INFORMATION
  Report Type: 
  Country: None (occurrence: None)
  Receive Date: 20050406
  Receipt Date: 20050328
  Transmission Date: 20051028
  Serious: Yes (Hospitalization)
  Sender: FDA-Public Use
  Company Number: US-JNJFOC-20050306896

PATIENT
  Age: 82 Year
  Sex: Male

DRUGS (14)
  1. PEPCID AC [Suspect]
     Route: 049
  2. PEPCID AC [Suspect]
     Route: 049
  3. PRILOSEC [Concomitant]
  4. PEPTO BISMOL [Concomitant]
  5. ALUMINUM HYDROXIDE AND MAGNESIUM TRISILICATE [Concomitant]
  6. ALUMINUM HYDROXIDE AND MAGNESIUM TRISILICATE [Concomitant]
  7. DILTIAZEM HCL [Concomitant]
  8. MONTELUKAST [Concomitant]
  9. FUROSEMIDE [Concomitant]
  10. POTASSIUM CHLORIDE [Concomitant]
  11. LISINOPRIL [Concomitant]
  12. ISOSORBIDE [Concomitant]
  13. LORATADINE [Concomitant]
     Route: 049
  14. SIMVASTATIN [Concomitant]

REACTIONS (2)
  - DRUG INEFFECTIVE [None]
  - GASTROOESOPHAGEAL REFLUX DISEASE [None]
